FAERS Safety Report 9729069 (Version 1)
Quarter: 2013Q4

REPORT INFORMATION
  Report Type: Spontaneous
  Country: GB (occurrence: GB)
  Receive Date: 20131204
  Receipt Date: 20131204
  Transmission Date: 20140711
  Serious: Yes (Other)
  Sender: FDA-Public Use
  Company Number: PHHY2013GB137363

PATIENT
  Sex: Male

DRUGS (1)
  1. ATENOLOL [Suspect]

REACTIONS (2)
  - Cough [Unknown]
  - Musculoskeletal discomfort [Unknown]
